FAERS Safety Report 7389656-1 (Version None)
Quarter: 2011Q2

REPORT INFORMATION
  Report Type: 
  Country: None (occurrence: None)
  Receive Date: 20110401
  Receipt Date: 20110321
  Transmission Date: 20111010
  Serious: Yes (Other)
  Sender: FDA-Public Use
  Company Number: BR-PFIZER INC-2011061805

PATIENT
  Age: 43 Year
  Sex: Female
  Weight: 82 kg

DRUGS (3)
  1. BUPROPION HYDROCHLORIDE [Concomitant]
     Indication: ANTIDEPRESSANT THERAPY
     Dosage: 150 MG, 1X/DAY
     Dates: start: 20110201
  2. LEVOTHYROXINE [Concomitant]
     Indication: HYPOTHYROIDISM
     Dosage: 100 MG, 1X/DAY
     Dates: start: 20060101
  3. PRISTIQ [Suspect]
     Indication: DEPRESSION
     Dosage: 50 MG, 1X/DAY
     Route: 048
     Dates: start: 20110201

REACTIONS (6)
  - HAEMATOCHEZIA [None]
  - ABDOMINAL PAIN [None]
  - SLEEP DISORDER [None]
  - NIGHTMARE [None]
  - CONSTIPATION [None]
  - INFREQUENT BOWEL MOVEMENTS [None]
